FAERS Safety Report 17292328 (Version 4)
Quarter: 2020Q2

REPORT INFORMATION
  Report Type: Spontaneous
  Country: US (occurrence: US)
  Receive Date: 20200121
  Receipt Date: 20200407
  Transmission Date: 20200713
  Serious: Yes (Other)
  Sender: FDA-Public Use
  Company Number: US-BAYER-2019-228002

PATIENT
  Age: 33 Year
  Sex: Female
  Weight: 62.59 kg

DRUGS (6)
  1. KYLEENA [Suspect]
     Active Substance: LEVONORGESTREL
     Dosage: 17.5 ?G PER DAY CONTINUOUSLY
     Route: 015
     Dates: start: 20191121
  2. CYTOTEC [Concomitant]
     Active Substance: MISOPROSTOL
     Dosage: 2 DF, QD
     Route: 048
  3. CYTOTEC [Concomitant]
     Active Substance: MISOPROSTOL
     Dosage: UNK
  4. MIRENA [Suspect]
     Active Substance: LEVONORGESTREL
     Indication: CONTRACEPTION
     Dosage: 20 ?G PER DAY CONTINUOUSLY
     Route: 015
     Dates: start: 201310, end: 201707
  5. ZOLOFT [Concomitant]
     Active Substance: SERTRALINE HYDROCHLORIDE
     Route: 048
  6. MIRENA [Suspect]
     Active Substance: LEVONORGESTREL
     Indication: CONTRACEPTION
     Dosage: 20 ?G PER DAY CONTINUOUSLY
     Route: 015
     Dates: start: 20190607, end: 20191121

REACTIONS (6)
  - Device expulsion [Recovered/Resolved]
  - Embedded device [Recovered/Resolved]
  - Medical device pain [None]
  - Medical device pain [None]
  - Procedural haemorrhage [Recovering/Resolving]
  - Device issue [None]

NARRATIVE: CASE EVENT DATE: 201707
